FAERS Safety Report 7672773-6 (Version None)
Quarter: 2011Q3

REPORT INFORMATION
  Report Type: 
  Country: None (occurrence: None)
  Receive Date: 20110809
  Receipt Date: 20110804
  Transmission Date: 20111222
  Serious: No
  Sender: FDA-Public Use
  Company Number: US-TEVA-294952USA

PATIENT
  Sex: Female

DRUGS (1)
  1. COPAXONE [Suspect]
     Indication: MULTIPLE SCLEROSIS
     Route: 058
     Dates: start: 20110713

REACTIONS (4)
  - INJECTION SITE DISCOLOURATION [None]
  - ARTHROPOD BITE [None]
  - INJECTION SITE INFLAMMATION [None]
  - INJECTION SITE PAIN [None]
